FAERS Safety Report 9911211 (Version 1)
Quarter: 2014Q1

REPORT INFORMATION
  Report Type: Spontaneous
  Country: US (occurrence: US)
  Receive Date: 20140219
  Receipt Date: 20140219
  Transmission Date: 20141002
  Serious: No
  Sender: FDA-Public Use
  Company Number: US-GE HEALTHCARE MEDICAL DIAGNOSTICS-DATS-PR-1401S-0006

PATIENT
  Sex: Female

DRUGS (2)
  1. DATSCAN [Suspect]
     Indication: PRODUCT USED FOR UNKNOWN INDICATION
     Dosage: DOSE NOT REPORTED
     Route: 065
  2. DATSCAN [Suspect]
     Indication: DIAGNOSTIC PROCEDURE

REACTIONS (3)
  - Gait disturbance [Unknown]
  - Balance disorder [Unknown]
  - Hypoaesthesia [Unknown]
